FAERS Safety Report 5205227-7 (Version None)
Quarter: 2007Q1

REPORT INFORMATION
  Report Type: 
  Country: None (occurrence: None)
  Receive Date: 20070110
  Receipt Date: 20061229
  Transmission Date: 20070707
  Serious: Yes (Hospitalization)
  Sender: FDA-Public Use
  Company Number: US-PFIZER INC-2007000451

PATIENT
  Sex: Female

DRUGS (2)
  1. EXEMESTANE [Suspect]
     Indication: BREAST CANCER
     Route: 048
     Dates: start: 20060206, end: 20061213
  2. TRIPTORELIN [Suspect]
     Indication: BREAST CANCER
     Dates: start: 20060206, end: 20061115

REACTIONS (5)
  - CHEST PAIN [None]
  - DIZZINESS [None]
  - NAUSEA [None]
  - TACHYCARDIA [None]
  - VOMITING [None]
